FAERS Safety Report 24649617 (Version 4)
Quarter: 2025Q1

REPORT INFORMATION
  Report Type: Report from Study
  Country: AT (occurrence: AT)
  Receive Date: 20241121
  Receipt Date: 20250120
  Transmission Date: 20250409
  Serious: Yes (Hospitalization)
  Sender: ABBVIE
  Company Number: AT-ABBVIE-6011669

PATIENT
  Age: 62 Year
  Sex: Female

DRUGS (2)
  1. FOSCARBIDOPA\FOSLEVODOPA [Suspect]
     Active Substance: FOSCARBIDOPA\FOSLEVODOPA
     Indication: Parkinson^s disease
     Route: 058
     Dates: start: 20241014, end: 20241116
  2. FOSCARBIDOPA\FOSLEVODOPA [Suspect]
     Active Substance: FOSCARBIDOPA\FOSLEVODOPA
     Route: 058
     Dates: end: 20250117

REACTIONS (8)
  - Erysipelas [Unknown]
  - Fear of disease [Not Recovered/Not Resolved]
  - Infusion site erythema [Recovering/Resolving]
  - Inflammatory marker increased [Unknown]
  - Infusion site inflammation [Unknown]
  - Infusion site induration [Recovering/Resolving]
  - Infusion site infection [Unknown]
  - Abdominal abscess [Unknown]

NARRATIVE: CASE EVENT DATE: 20240101
